FAERS Safety Report 10515177 (Version 1)
Quarter: 2014Q4

REPORT INFORMATION
  Report Type: Report from Study
  Country: AR (occurrence: AR)
  Receive Date: 20141014
  Receipt Date: 20141014
  Transmission Date: 20150528
  Serious: Yes (Death, Hospitalization)
  Sender: FDA-Public Use
  Company Number: PHHY2014AR133397

PATIENT
  Age: 76 Year
  Sex: Female

DRUGS (1)
  1. EXFORGE [Suspect]
     Active Substance: AMLODIPINE BESYLATE\VALSARTAN
     Indication: HYPERTENSION
     Route: 048

REACTIONS (5)
  - Bronchopneumonia [Recovering/Resolving]
  - Cerebrovascular accident [Recovering/Resolving]
  - Arrhythmia [Unknown]
  - Infarction [Fatal]
  - Stress [Unknown]

NARRATIVE: CASE EVENT DATE: 201408
